FAERS Safety Report 8847822 (Version 1)
Quarter: 2012Q4

REPORT INFORMATION
  Report Type: 
  Country: US (occurrence: US)
  Receive Date: 20121018
  Receipt Date: 20121018
  Transmission Date: 20130627
  Serious: No
  Sender: FDA-Public Use
  Company Number: US-009507513-1210USA002808

PATIENT
  Age: 33 Year
  Sex: Male

DRUGS (2)
  1. DULERA [Suspect]
     Dosage: 100 Microgram, UNK
     Route: 055
  2. ADVAIR [Suspect]

REACTIONS (1)
  - Migraine [Recovered/Resolved]
